FAERS Safety Report 10249065 (Version 1)
Quarter: 2014Q2

REPORT INFORMATION
  Report Type: Spontaneous
  Country: KR (occurrence: KR)
  Receive Date: 20140620
  Receipt Date: 20140620
  Transmission Date: 20141212
  Serious: Yes (Hospitalization)
  Sender: FDA-Public Use
  Company Number: KR-MERCK-1406KOR007570

PATIENT
  Age: 61 Year
  Sex: Female

DRUGS (3)
  1. PEG-INTRON [Suspect]
     Dosage: 1.5 MICROGRAM PER KILOGRAM/WK
     Route: 058
     Dates: start: 200802, end: 20080828
  2. RIBAVIRIN [Suspect]
     Indication: CHRONIC HEPATITIS C
     Dosage: 1000 MG, DAILY PER OS
     Route: 048
     Dates: start: 200802, end: 200805
  3. RIBAVIRIN [Suspect]
     Dosage: 400 MG, QD
     Route: 048
     Dates: start: 200806, end: 200808

REACTIONS (1)
  - Meningitis cryptococcal [Recovered/Resolved]
